FAERS Safety Report 7018660-8 (Version None)
Quarter: 2010Q3

REPORT INFORMATION
  Report Type: 
  Country: None (occurrence: None)
  Receive Date: 20100928
  Receipt Date: 20100917
  Transmission Date: 20110219
  Serious: Yes (Hospitalization, Other)
  Sender: FDA-Public Use
  Company Number: US-SANOFI-AVENTIS-2010SA045292

PATIENT
  Age: 87 Year
  Sex: Female

DRUGS (2)
  1. SOLOSTAR [Suspect]
     Dates: start: 20080101
  2. LANTUS [Suspect]
     Dosage: DOSE:4 UNIT(S)
     Route: 058

REACTIONS (6)
  - ASTHENIA [None]
  - BLOOD GLUCOSE INCREASED [None]
  - FALL [None]
  - HYPOGLYCAEMIA [None]
  - LOWER LIMB FRACTURE [None]
  - PRODUCT QUALITY ISSUE [None]
